FAERS Safety Report 6093827-4 (Version None)
Quarter: 2009Q1

REPORT INFORMATION
  Report Type: 
  Country: None (occurrence: None)
  Receive Date: 20090226
  Receipt Date: 20090216
  Transmission Date: 20090719
  Serious: Yes (Hospitalization, Other)
  Sender: FDA-Public Use
  Company Number: FR-PFIZER INC-2009173714

PATIENT

DRUGS (5)
  1. ATARAX [Suspect]
     Dosage: UNK
     Route: 048
     Dates: start: 20080227
  2. AMOXICILLIN AND AMOXICILLIN TRIHYDRATE [Suspect]
     Dosage: UNK
     Route: 042
     Dates: start: 20080226
  3. LOXEN [Suspect]
     Dosage: 10 MG, 3X/DAY
     Route: 042
     Dates: start: 20080226
  4. HYDROCORTISONE [Concomitant]
     Dosage: UNK
     Route: 042
     Dates: start: 20080226
  5. PARACETAMOL [Concomitant]
     Dosage: UNK
     Route: 042
     Dates: start: 20080227

REACTIONS (6)
  - ANGINA PECTORIS [None]
  - CARDIAC FAILURE [None]
  - CHEST DISCOMFORT [None]
  - DYSPNOEA [None]
  - HEADACHE [None]
  - PULMONARY OEDEMA [None]
